FAERS Safety Report 12775417 (Version 1)
Quarter: 2016Q3

REPORT INFORMATION
  Report Type: Spontaneous
  Country: US (occurrence: US)
  Receive Date: 20160922
  Receipt Date: 20160922
  Transmission Date: 20161109
  Serious: No
  Sender: FDA-Public Use
  Company Number: None

PATIENT
  Age: 53 Year
  Sex: Male
  Weight: 76.5 kg

DRUGS (17)
  1. TAMSULOSIN [Concomitant]
     Active Substance: TAMSULOSIN
  2. DIAZEPAM. [Concomitant]
     Active Substance: DIAZEPAM
  3. TIZANIDINE. [Concomitant]
     Active Substance: TIZANIDINE
  4. HYDROXOCOBALAMIN [Concomitant]
     Active Substance: HYDROXOCOBALAMIN
  5. VITAMIN C [Concomitant]
     Active Substance: ASCORBIC ACID
  6. VITAMIN D3 [Concomitant]
     Active Substance: CHOLECALCIFEROL
  7. BENADRYL [Concomitant]
     Active Substance: DIPHENHYDRAMINE HYDROCHLORIDE
  8. PRAZOSIN 2MG CAPSULES MYLAN [Suspect]
     Active Substance: PRAZOSIN
     Indication: ABNORMAL DREAMS
     Dosage: AT BEDTIME
     Route: 048
     Dates: start: 20160922, end: 20160922
  9. FISH OIL [Concomitant]
     Active Substance: FISH OIL
  10. POTASSIUM [Concomitant]
     Active Substance: POTASSIUM
  11. E- PS JARRO-DOPHILUS PRO BIOTIC [Concomitant]
  12. ADDERALL [Concomitant]
     Active Substance: AMPHETAMINE ASPARTATE\AMPHETAMINE SULFATE\DEXTROAMPHETAMINE SACCHARATE\DEXTROAMPHETAMINE SULFATE
  13. METAMUCIL [Concomitant]
     Active Substance: PLANTAGO SEED
  14. MULTIVITAMIN [Concomitant]
     Active Substance: VITAMINS
  15. PRO AIR INHALER HFA [Concomitant]
  16. SUDAFED [Concomitant]
     Active Substance: PSEUDOEPHEDRINE HYDROCHLORIDE
  17. CO-Q10 [Concomitant]

REACTIONS (1)
  - Penile pain [None]

NARRATIVE: CASE EVENT DATE: 20160922
